FAERS Safety Report 16329863 (Version 1)
Quarter: 2019Q2

REPORT INFORMATION
  Report Type: Report from Study
  Country: JP (occurrence: JP)
  Receive Date: 20190520
  Receipt Date: 20190520
  Transmission Date: 20190711
  Serious: Yes (Other)
  Sender: FDA-Public Use
  Company Number: JP-AMGEN-JPNCT2019078177

PATIENT
  Age: 80 Year
  Sex: Male

DRUGS (7)
  1. DARBEPOETIN ALFA [Suspect]
     Active Substance: DARBEPOETIN ALFA
     Indication: MYELODYSPLASTIC SYNDROME
     Dosage: 240 MICROGRAM, Q2WK
     Route: 058
     Dates: start: 20171214, end: 20180110
  2. DARBEPOETIN ALFA [Suspect]
     Active Substance: DARBEPOETIN ALFA
     Dosage: UNK UNK, QWK
     Route: 058
     Dates: start: 20180815
  3. DARBEPOETIN ALFA [Suspect]
     Active Substance: DARBEPOETIN ALFA
     Dosage: UNK UNK, QWK
     Route: 058
     Dates: start: 20180329, end: 20180801
  4. AZOSEMIDE [Concomitant]
     Active Substance: AZOSEMIDE
     Indication: CARDIAC FAILURE CONGESTIVE
     Dosage: 30 MILLIGRAM
     Route: 048
     Dates: start: 20180222
  5. WARFARIN [WARFARIN POTASSIUM] [Concomitant]
     Indication: ATRIAL FIBRILLATION
     Dosage: 3 MILLIGRAM
     Route: 048
  6. ALEVIATIN [PHENYTOIN] [Concomitant]
     Active Substance: PHENYTOIN
     Indication: EPILEPSY
     Dosage: 200 MILLIGRAM
     Route: 048
  7. DARBEPOETIN ALFA [Suspect]
     Active Substance: DARBEPOETIN ALFA
     Dosage: UNK UNK, QWK
     Route: 058
     Dates: start: 20180117, end: 20180315

REACTIONS (2)
  - Cardiac failure congestive [Recovering/Resolving]
  - Bradycardia [Recovering/Resolving]

NARRATIVE: CASE EVENT DATE: 20180221
